FAERS Safety Report 4434981-7 (Version None)
Quarter: 2004Q3

REPORT INFORMATION
  Report Type: 
  Country: None (occurrence: None)
  Receive Date: 20040826
  Receipt Date: 20040818
  Transmission Date: 20050211
  Serious: Yes (Life-Threatening, Hospitalization)
  Sender: FDA-Public Use
  Company Number: 2004UW15932

PATIENT
  Age: 65 Year
  Sex: Male

DRUGS (4)
  1. CRESTOR [Suspect]
     Dosage: 10 MG QD PO
     Route: 048
     Dates: start: 20040525, end: 20040607
  2. LIPITOR [Concomitant]
  3. ATENOLOL [Concomitant]
  4. BLOOD PRESSURE MEDICATION [Concomitant]

REACTIONS (8)
  - DYSPEPSIA [None]
  - PHARYNGITIS [None]
  - PNEUMONIA VIRAL [None]
  - PROSTATIC SPECIFIC ANTIGEN INCREASED [None]
  - RHABDOMYOLYSIS [None]
  - SINUSITIS [None]
  - URINARY TRACT INFECTION [None]
  - WEIGHT DECREASED [None]
